FAERS Safety Report 9699213 (Version 2)
Quarter: 2013Q4

REPORT INFORMATION
  Report Type: Spontaneous
  Country: US (occurrence: US)
  Receive Date: 20131120
  Receipt Date: 20131120
  Transmission Date: 20140711
  Serious: No
  Sender: FDA-Public Use
  Company Number: US-GILEAD-2008-0014913

PATIENT
  Age: 84 Year
  Sex: Female
  Weight: 59.87 kg

DRUGS (9)
  1. LETAIRIS [Suspect]
     Indication: PULMONARY ARTERIAL HYPERTENSION
     Route: 048
     Dates: start: 20080103, end: 20080109
  2. COUMADIN [Concomitant]
     Dosage: UD
     Route: 048
  3. LISINOPRIL [Concomitant]
     Dosage: UD
     Route: 048
  4. AMIODARONE [Concomitant]
     Dosage: UD
     Route: 048
  5. ALBUTEROL [Concomitant]
     Dosage: UD
     Route: 055
  6. IPRATROPIUM [Concomitant]
     Dosage: UD
     Route: 055
  7. FOSAMAX [Concomitant]
     Dosage: UD
     Route: 048
  8. IRON [Concomitant]
     Dosage: UD
     Route: 048
  9. VITAMIN B12 [Concomitant]
     Dosage: UD
     Route: 048

REACTIONS (4)
  - Flank pain [Unknown]
  - Urine output decreased [Recovered/Resolved]
  - Vomiting [Recovered/Resolved]
  - Headache [Recovered/Resolved]
